FAERS Safety Report 4724619-3 (Version None)
Quarter: 2005Q3

REPORT INFORMATION
  Report Type: 
  Country: None (occurrence: None)
  Receive Date: 20050726
  Receipt Date: 20050713
  Transmission Date: 20060218
  Serious: Yes (Hospitalization)
  Sender: FDA-Public Use
  Company Number: JP-MERCK-0507USA03186

PATIENT
  Age: 56 Year
  Sex: Male

DRUGS (5)
  1. PEPCID [Suspect]
     Route: 048
     Dates: start: 20050507, end: 20050704
  2. CLOBAZAM [Concomitant]
     Route: 048
     Dates: start: 20050507
  3. THYRADIN [Concomitant]
     Route: 048
  4. TEGRETOL [Concomitant]
     Route: 048
  5. PREDNISOLONE [Concomitant]
     Route: 048
     Dates: start: 20050713

REACTIONS (3)
  - CONFUSIONAL STATE [None]
  - DELIRIUM [None]
  - EXCITABILITY [None]
